FAERS Safety Report 15935922 (Version 2)
Quarter: 2025Q3

REPORT INFORMATION
  Report Type: Report from Study
  Country: US (occurrence: US)
  Receive Date: 20190208
  Receipt Date: 20250716
  Transmission Date: 20251021
  Serious: Yes (Hospitalization, Other)
  Sender: AUROBINDO
  Company Number: US-AUROBINDO-AUR-APL-2019-004834

PATIENT
  Age: 51 Year
  Sex: Male

DRUGS (4)
  1. DEXAMETHASONE [Suspect]
     Active Substance: DEXAMETHASONE
     Indication: Neurocysticercosis
     Dosage: 4 MILLIGRAM, ONCE A DAY
     Route: 065
     Dates: start: 20160909, end: 2016
  2. ALBENDAZOLE [Suspect]
     Active Substance: ALBENDAZOLE
     Indication: Neurocysticercosis
     Route: 065
     Dates: start: 20160909
  3. PRAZIQUANTEL [Suspect]
     Active Substance: PRAZIQUANTEL
     Indication: Neurocysticercosis
     Route: 065
     Dates: start: 20160909
  4. BACTRIM [Concomitant]
     Active Substance: SULFAMETHOXAZOLE\TRIMETHOPRIM
     Indication: Antifungal prophylaxis
     Route: 065

REACTIONS (1)
  - Substance-induced psychotic disorder [Recovering/Resolving]

NARRATIVE: CASE EVENT DATE: 20160928
